FAERS Safety Report 10377502 (Version 1)
Quarter: 2014Q3

REPORT INFORMATION
  Report Type: Spontaneous
  Country: US (occurrence: None)
  Receive Date: 20140811
  Receipt Date: 20140811
  Transmission Date: 20150326
  Serious: Yes (Hospitalization)
  Sender: FDA-Public Use
  Company Number: None

PATIENT
  Age: 33 Year
  Sex: Male
  Weight: 94.9 kg

DRUGS (1)
  1. PRAVASTATIN [Suspect]
     Active Substance: PRAVASTATIN\PRAVASTATIN SODIUM
     Indication: HYPERLIPIDAEMIA
     Route: 048
     Dates: start: 20140317, end: 20140731

REACTIONS (5)
  - Blood urea increased [None]
  - Blood creatinine increased [None]
  - Myalgia [None]
  - Hepatic enzyme increased [None]
  - Chromaturia [None]

NARRATIVE: CASE EVENT DATE: 20140729
